FAERS Safety Report 5203552-7 (Version None)
Quarter: 2007Q1

REPORT INFORMATION
  Report Type: 
  Country: None (occurrence: None)
  Receive Date: 20070110
  Receipt Date: 20070108
  Transmission Date: 20070707
  Serious: Yes (Other)
  Sender: FDA-Public Use
  Company Number: US-GLAXOSMITHKLINE-A0634734A

PATIENT
  Age: 58 Year
  Sex: Female

DRUGS (5)
  1. REQUIP [Suspect]
     Indication: RESTLESS LEGS SYNDROME
     Route: 048
     Dates: start: 20060101
  2. METFORMIN HCL [Concomitant]
  3. THYROID TAB [Concomitant]
  4. LOVASTATIN [Concomitant]
  5. IBUPROFEN [Concomitant]

REACTIONS (7)
  - ARTHRALGIA [None]
  - FATIGUE [None]
  - JOINT STIFFNESS [None]
  - JOINT SWELLING [None]
  - MALAISE [None]
  - OSTEOARTHRITIS [None]
  - RHEUMATOID ARTHRITIS [None]
